FAERS Safety Report 14541599 (Version 1)
Quarter: 2018Q1

REPORT INFORMATION
  Report Type: Spontaneous
  Country: DE (occurrence: DE)
  Receive Date: 20180216
  Receipt Date: 20180216
  Transmission Date: 20180509
  Serious: Yes (Hospitalization, Other)
  Sender: FDA-Public Use
  Company Number: DE-IMPAX LABORATORIES, INC-2018-IPXL-00428

PATIENT
  Age: 72 Year
  Sex: Male

DRUGS (15)
  1. ACETYLSALICYLIC ACID [Suspect]
     Active Substance: ASPIRIN
     Indication: PRODUCT USED FOR UNKNOWN INDICATION
     Dosage: 100 MG, QD
     Route: 065
  2. HYDROCHLOROTHIAZIDE. [Suspect]
     Active Substance: HYDROCHLOROTHIAZIDE
     Indication: PRODUCT USED FOR UNKNOWN INDICATION
     Dosage: 12.5 MG, QD
     Route: 065
  3. QUETIAPINE. [Suspect]
     Active Substance: QUETIAPINE
     Indication: PRODUCT USED FOR UNKNOWN INDICATION
     Dosage: 25 MG, QD
     Route: 065
  4. DIVALPROEX SODIUM ER [Interacting]
     Active Substance: DIVALPROEX SODIUM
     Dosage: 1500 MG, DAILY (DAY 2)
     Route: 042
  5. DIVALPROEX SODIUM ER [Suspect]
     Active Substance: DIVALPROEX SODIUM
     Indication: PRODUCT USED FOR UNKNOWN INDICATION
     Dosage: UNK
     Route: 065
  6. DIVALPROEX SODIUM ER [Interacting]
     Active Substance: DIVALPROEX SODIUM
     Dosage: 900 MG, DAILY (DAY 9-19)
     Route: 048
  7. DIPYRONE [Interacting]
     Active Substance: DIPYRONE
     Indication: PROCEDURAL PAIN
     Dosage: 1000 MG (ON DAY 1)
     Route: 042
  8. DIPYRONE [Interacting]
     Active Substance: DIPYRONE
     Dosage: 3000 MG, (DAY 2)
     Route: 042
  9. DIVALPROEX SODIUM ER [Interacting]
     Active Substance: DIVALPROEX SODIUM
     Dosage: 900 TO 1500 MG (DAY 6 AND 7)
     Route: 048
  10. METILDIGOXIN [Suspect]
     Active Substance: METILDIGOXIN
     Indication: PRODUCT USED FOR UNKNOWN INDICATION
     Dosage: 0.1 MG, QD
     Route: 065
  11. METOPROLOL. [Suspect]
     Active Substance: METOPROLOL
     Indication: PRODUCT USED FOR UNKNOWN INDICATION
     Dosage: 95 MG, QD
     Route: 065
  12. ALLOPURINOL. [Suspect]
     Active Substance: ALLOPURINOL
     Indication: PRODUCT USED FOR UNKNOWN INDICATION
     Dosage: 300 (UNITS NOT PROVIDED),QD
     Route: 065
  13. DIVALPROEX SODIUM ER [Interacting]
     Active Substance: DIVALPROEX SODIUM
     Dosage: 1000 MG, DAILY (DAYS 1)
     Route: 042
  14. DIVALPROEX SODIUM ER [Interacting]
     Active Substance: DIVALPROEX SODIUM
     Dosage: 450 MG, BID
     Route: 065
  15. DIPYRONE [Interacting]
     Active Substance: DIPYRONE
     Dosage: 3000 MG, , (ON DAY 3-10)
     Route: 048

REACTIONS (5)
  - Acute myocardial infarction [Unknown]
  - Myoclonic epilepsy [Unknown]
  - Procedural pain [Unknown]
  - Anticonvulsant drug level below therapeutic [Recovered/Resolved]
  - Drug interaction [Unknown]
